FAERS Safety Report 6934168-X (Version None)
Quarter: 2010Q3

REPORT INFORMATION
  Report Type: 
  Country: None (occurrence: None)
  Receive Date: 20100820
  Receipt Date: 20100812
  Transmission Date: 20110219
  Serious: Yes (Hospitalization)
  Sender: FDA-Public Use
  Company Number: AU-PFIZER INC-2010093454

PATIENT
  Age: 63 Year
  Sex: Female

DRUGS (2)
  1. LIPITOR [Suspect]
     Indication: HYPERCHOLESTEROLAEMIA
     Dosage: 20 MG, 1X/DAY AT NIGHT
     Dates: start: 20090603, end: 20091011
  2. LIPITOR [Suspect]
     Indication: FAMILIAL RISK FACTOR

REACTIONS (1)
  - MOTOR NEURONE DISEASE [None]
